FAERS Safety Report 4608558-4 (Version None)
Quarter: 2005Q1

REPORT INFORMATION
  Report Type: 
  Country: None (occurrence: None)
  Receive Date: 20050311
  Receipt Date: 20050311
  Transmission Date: 20050727
  Serious: Yes (Other)
  Sender: FDA-Public Use
  Company Number: None

PATIENT
  Sex: Female

DRUGS (1)
  1. ERLOTINIB [Suspect]
     Indication: LUNG NEOPLASM MALIGNANT
     Dosage: 150 MG DAILY ORAL
     Route: 048
     Dates: start: 20050221, end: 20050221

REACTIONS (3)
  - NAUSEA [None]
  - TREMOR [None]
  - VOMITING [None]
